FAERS Safety Report 8185154-6 (Version None)
Quarter: 2012Q1

REPORT INFORMATION
  Report Type: 
  Country: None (occurrence: None)
  Receive Date: 20120305
  Receipt Date: 20120227
  Transmission Date: 20120608
  Serious: Yes (Congenital Anomaly, Other)
  Sender: FDA-Public Use
  Company Number: US-TEVA-325024USA

PATIENT

DRUGS (3)
  1. CARBAMAZEPINE [Suspect]
     Dosage: 1000MG
     Route: 064
  2. LAMOTRIGINE [Suspect]
     Dosage: AT LAST LMP, 0 MG 15 WKS
     Route: 064
  3. CLOBAZAM [Suspect]
     Dosage: 30MG
     Route: 064

REACTIONS (3)
  - RENAL APLASIA [None]
  - RIGHT AORTIC ARCH [None]
  - OESOPHAGEAL ATRESIA [None]
